FAERS Safety Report 5038950-8 (Version None)
Quarter: 2006Q2

REPORT INFORMATION
  Report Type: 
  Country: None (occurrence: None)
  Receive Date: 20060626
  Receipt Date: 20060626
  Transmission Date: 20061013
  Serious: Yes (Life-Threatening)
  Sender: FDA-Public Use
  Company Number: None

PATIENT
  Sex: Female
  Weight: 20 kg

DRUGS (1)
  1. CEFTRIAXONE [Suspect]
     Dosage: 1 GM EVERY 12 HOURS IV
     Route: 042
     Dates: start: 20060606, end: 20060610

REACTIONS (5)
  - CIRCULATORY COLLAPSE [None]
  - DRUG SPECIFIC ANTIBODY PRESENT [None]
  - HAEMATOCRIT DECREASED [None]
  - HAEMOLYSIS [None]
  - TYPE III IMMUNE COMPLEX MEDIATED REACTION [None]
